FAERS Safety Report 10587287 (Version 2)
Quarter: 2015Q1

REPORT INFORMATION
  Report Type: Spontaneous
  Country: DE (occurrence: DE)
  Receive Date: 20141117
  Receipt Date: 20150105
  Transmission Date: 20150720
  Serious: Yes (Other)
  Sender: FDA-Public Use
  Company Number: DE-JNJFOC-20141103424

PATIENT
  Age: 14 Year
  Sex: Female
  Weight: 71 kg

DRUGS (3)
  1. METHYLPHENIDATE [Concomitant]
     Active Substance: METHYLPHENIDATE
     Indication: ATTENTION DEFICIT/HYPERACTIVITY DISORDER
     Route: 065
     Dates: start: 201106
  2. CONCERTA [Suspect]
     Active Substance: METHYLPHENIDATE HYDROCHLORIDE
     Indication: ATTENTION DEFICIT/HYPERACTIVITY DISORDER
     Dosage: SINCE 3 YEARS
     Route: 048
     Dates: start: 201104
  3. TAMSULOSIN [Concomitant]
     Active Substance: TAMSULOSIN
     Route: 065

REACTIONS (4)
  - Dysuria [Unknown]
  - Urinary retention [Unknown]
  - Wolff-Parkinson-White syndrome [Not Recovered/Not Resolved]
  - Micturition urgency [Recovering/Resolving]

NARRATIVE: CASE EVENT DATE: 20141028
